FAERS Safety Report 16807494 (Version 2)
Quarter: 2019Q4

REPORT INFORMATION
  Report Type: Report from Study
  Country: None (occurrence: AR)
  Receive Date: 20190913
  Receipt Date: 20191129
  Transmission Date: 20200122
  Serious: Yes (Hospitalization, Other)
  Sender: FDA-Public Use
  Company Number: AR-ABBVIE-19K-007-2923962-00

PATIENT
  Age: 76 Year
  Sex: Female

DRUGS (2)
  1. HUMIRA [Suspect]
     Active Substance: ADALIMUMAB
     Indication: RHEUMATOID ARTHRITIS
     Route: 058
     Dates: start: 20110401, end: 20190729
  2. HUMIRA [Suspect]
     Active Substance: ADALIMUMAB
     Route: 058
     Dates: start: 20190827

REACTIONS (14)
  - Dizziness [Unknown]
  - Laboratory test abnormal [Not Recovered/Not Resolved]
  - Abdominal pain upper [Not Recovered/Not Resolved]
  - Joint injury [Unknown]
  - Fall [Unknown]
  - Joint swelling [Unknown]
  - Pain [Unknown]
  - Gastrointestinal pain [Unknown]
  - Urinary tract infection [Recovered/Resolved]
  - Osteoarthritis [Recovering/Resolving]
  - Pain in extremity [Not Recovered/Not Resolved]
  - Spinal pain [Not Recovered/Not Resolved]
  - Limb deformity [Unknown]
  - Osteoarthritis [Unknown]

NARRATIVE: CASE EVENT DATE: 201910
